FAERS Safety Report 7946843-9 (Version None)
Quarter: 2011Q4

REPORT INFORMATION
  Report Type: 
  Country: None (occurrence: None)
  Receive Date: 20111129
  Receipt Date: 20111121
  Transmission Date: 20120403
  Serious: Yes (Hospitalization, Other)
  Sender: FDA-Public Use
  Company Number: US-PFIZER INC-2011280770

PATIENT
  Age: 57 Year
  Sex: Female
  Weight: 47.3 kg

DRUGS (2)
  1. CARBOPLATIN [Suspect]
     Indication: OVARIAN CANCER
     Dosage: 753 MG/M2 (1100 MG IN 250 ML OF SALINE OVER 1 HOUR, AUC 7.5MG/ML)
     Route: 042
  2. TAXOL [Concomitant]
     Indication: OVARIAN CANCER
     Dosage: 175 MG/M2 (250 MG)

REACTIONS (2)
  - HAEMATURIA [None]
  - RENAL FAILURE ACUTE [None]
